FAERS Safety Report 6357063-6 (Version None)
Quarter: 2009Q3

REPORT INFORMATION
  Report Type: 
  Country: None (occurrence: None)
  Receive Date: 20090915
  Receipt Date: 20090910
  Transmission Date: 20100115
  Serious: Yes (Hospitalization)
  Sender: FDA-Public Use
  Company Number: US-GENENTECH-286453

PATIENT
  Sex: Female

DRUGS (8)
  1. BEVACIZUMAB [Suspect]
     Indication: OVARIAN CANCER
     Dosage: 15 MG/KG, UNK
     Route: 042
     Dates: start: 20081014, end: 20090609
  2. TAXOL [Concomitant]
     Indication: OVARIAN CANCER
     Dosage: 175 MG/M2, UNK
     Route: 042
     Dates: start: 20081014, end: 20090203
  3. CISPLATIN [Concomitant]
     Indication: OVARIAN CANCER
     Dosage: UNK
     Route: 033
     Dates: start: 20081014, end: 20081126
  4. SALSALATE [Concomitant]
     Indication: ARTHRALGIA
     Dosage: 500 MG, UNK
     Dates: start: 20090609, end: 20090721
  5. SALSALATE [Concomitant]
     Indication: MYALGIA
  6. ACETAMINOPHEN [Concomitant]
     Indication: DRUG USE FOR UNKNOWN INDICATION
     Dosage: 500 MG, UNK
     Dates: start: 20081104, end: 20090721
  7. DALTEPARIN SODIUM [Concomitant]
     Indication: DRUG USE FOR UNKNOWN INDICATION
     Dosage: 7500 IU, UNK
     Dates: start: 20090317, end: 20090714
  8. SODIUM CHLORIDE [Concomitant]
     Indication: DRUG USE FOR UNKNOWN INDICATION
     Dosage: 0.9 %, UNK
     Dates: start: 20081014, end: 20090721

REACTIONS (3)
  - DIZZINESS [None]
  - NAUSEA [None]
  - NERVOUS SYSTEM DISORDER [None]
